FAERS Safety Report 12788381 (Version 1)
Quarter: 2016Q3

REPORT INFORMATION
  Report Type: Not Available
  Country: None (occurrence: US)
  Receive Date: 20160928
  Receipt Date: 20160928
  Transmission Date: 20161109
  Serious: Yes (Life-Threatening, Other)
  Sender: FDA-Public Use
  Company Number: US-AKORN-39347

PATIENT
  Age: 24 Year
  Sex: Male

DRUGS (1)
  1. SUBLIMAZE [Suspect]
     Active Substance: FENTANYL CITRATE

REACTIONS (6)
  - Overdose [None]
  - Hypopnoea [Recovered/Resolved]
  - Drug withdrawal syndrome [None]
  - Vomiting [None]
  - Unresponsive to stimuli [None]
  - Malaise [None]
